FAERS Safety Report 21006837 (Version 2)
Quarter: 2022Q2

REPORT INFORMATION
  Report Type: Report from Study
  Country: US (occurrence: US)
  Receive Date: 20220625
  Receipt Date: 20220625
  Transmission Date: 20220720
  Serious: No
  Sender: FDA-Public Use
  Company Number: US-CELGENE-USA-20220200160

PATIENT
  Age: 60 Year
  Sex: Female
  Weight: 83.91 kg

DRUGS (2)
  1. REVLIMID [Suspect]
     Active Substance: LENALIDOMIDE
     Indication: Plasma cell myeloma
     Dosage: 25 MILLIGRAM
     Route: 048
     Dates: start: 201904
  2. REVLIMID [Suspect]
     Active Substance: LENALIDOMIDE
     Dosage: DOSE: 10 MG  FREQUENCY: DAILY FOR 21 DAYS
     Route: 048
     Dates: start: 201912

REACTIONS (4)
  - Back pain [Unknown]
  - Diarrhoea [Unknown]
  - Cough [Unknown]
  - Sneezing [Unknown]
